FAERS Safety Report 5270375-2 (Version None)
Quarter: 2007Q1

REPORT INFORMATION
  Report Type: 
  Country: None (occurrence: None)
  Receive Date: 20070320
  Receipt Date: 20070307
  Transmission Date: 20070707
  Serious: Yes (Hospitalization, Disabling)
  Sender: FDA-Public Use
  Company Number: FR-AMGEN-UK209714

PATIENT
  Sex: Female
  Weight: 47 kg

DRUGS (7)
  1. KEPIVANCE [Suspect]
     Indication: MUCOSAL INFLAMMATION
     Route: 042
     Dates: start: 20061204
  2. ALKERAN [Concomitant]
     Route: 065
  3. LUTENYL [Concomitant]
     Route: 048
  4. OGAST [Concomitant]
     Route: 048
  5. LEXOMIL [Concomitant]
     Route: 048
  6. ZOLPIDEM TARTRATE [Concomitant]
     Route: 048
  7. BOANMYCIN [Concomitant]
     Route: 065
     Dates: start: 20061201

REACTIONS (15)
  - ANAEMIA [None]
  - ANOREXIA [None]
  - DIARRHOEA [None]
  - DYSPHAGIA [None]
  - GAIT DISTURBANCE [None]
  - GAMMA-GLUTAMYLTRANSFERASE INCREASED [None]
  - GENERAL PHYSICAL HEALTH DETERIORATION [None]
  - LEUKOPENIA [None]
  - NEUTROPENIA [None]
  - OESOPHAGITIS [None]
  - SALIVARY HYPERSECRETION [None]
  - SKIN EXFOLIATION [None]
  - SKIN HYPERPIGMENTATION [None]
  - THROMBOCYTOPENIA [None]
  - VOMITING [None]
